FAERS Safety Report 5050391-6 (Version None)
Quarter: 2006Q3

REPORT INFORMATION
  Report Type: 
  Country: None (occurrence: None)
  Receive Date: 20060707
  Receipt Date: 20060627
  Transmission Date: 20061208
  Serious: Yes (Life-Threatening)
  Sender: FDA-Public Use
  Company Number: T200600584

PATIENT
  Age: 88 Year
  Sex: Female
  Weight: 26 kg

DRUGS (3)
  1. OPTIRAY 320 [Suspect]
     Indication: COMPUTERISED TOMOGRAM ABDOMEN
     Dosage: 50 MI, SINGLE, IV DRIP
     Dates: start: 20060524, end: 20060524
  2. NITRAZEPAM (NITRAZEPAM) TABLET [Concomitant]
  3. DIAZEPAM [Concomitant]

REACTIONS (5)
  - DYSPNOEA [None]
  - FLUSHING [None]
  - HOT FLUSH [None]
  - LOSS OF CONSCIOUSNESS [None]
  - SHOCK [None]
